FAERS Safety Report 6259917-8 (Version None)
Quarter: 2009Q3

REPORT INFORMATION
  Report Type: 
  Country: None (occurrence: None)
  Receive Date: 20090708
  Receipt Date: 20090701
  Transmission Date: 20100115
  Serious: Yes (Other)
  Sender: FDA-Public Use
  Company Number: PHHY2009GB17238

PATIENT
  Sex: Female

DRUGS (2)
  1. CYCLOSPORINE [Suspect]
     Indication: EPIDERMOLYSIS BULLOSA
     Dosage: 300 MG/DAY
     Dates: start: 20090118, end: 20090221
  2. CHLORPHENIRAMINE MALEATE [Concomitant]

REACTIONS (1)
  - MYALGIA [None]
